FAERS Safety Report 16642137 (Version 1)
Quarter: 2019Q3

REPORT INFORMATION
  Report Type: Spontaneous
  Country: FR (occurrence: FR)
  Receive Date: 20190729
  Receipt Date: 20190729
  Transmission Date: 20191004
  Serious: Yes (Hospitalization)
  Sender: FDA-Public Use
  Company Number: FR-SA-2019SA200566

PATIENT
  Age: 59 Year
  Sex: Female
  Weight: 61 kg

DRUGS (1)
  1. LANTUS [Suspect]
     Active Substance: INSULIN GLARGINE
     Route: 058
     Dates: start: 20181202, end: 20181202

REACTIONS (3)
  - Hypokalaemia [Recovered/Resolved]
  - Hypoglycaemia [Recovered/Resolved]
  - Somnolence [Recovered/Resolved]

NARRATIVE: CASE EVENT DATE: 20181202
